FAERS Safety Report 9305964 (Version 1)
Quarter: 2013Q2

REPORT INFORMATION
  Report Type: Spontaneous
  Country: US (occurrence: None)
  Receive Date: 20130520
  Receipt Date: 20130520
  Transmission Date: 20140414
  Serious: Yes (Other)
  Sender: FDA-Public Use
  Company Number: US-1198333

PATIENT
  Sex: 0

DRUGS (1)
  1. TRIESENCE INJECTION (TRIAMCINOLONE 40 MG/ML) [Suspect]
     Route: 040

REACTIONS (2)
  - Non-infectious endophthalmitis [None]
  - Off label use [None]
